FAERS Safety Report 12714899 (Version 5)
Quarter: 2017Q1

REPORT INFORMATION
  Report Type: Report from Study
  Country: JP (occurrence: JP)
  Receive Date: 20160905
  Receipt Date: 20170315
  Transmission Date: 20170428
  Serious: Yes (Death, Other)
  Sender: FDA-Public Use
  Company Number: JP-UCBSA-2016034016

PATIENT
  Age: 68 Year
  Sex: Male
  Weight: 60 kg

DRUGS (4)
  1. GLYCEOL [Concomitant]
     Active Substance: GLYCERIN
     Indication: PRODUCT USED FOR UNKNOWN INDICATION
     Dosage: 100 ML, 2X/DAY (BID)
     Dates: start: 20160502, end: 20160504
  2. DOBUTAMINE [Concomitant]
     Active Substance: DOBUTAMINE\DOBUTAMINE HYDROCHLORIDE
     Indication: PRODUCT USED FOR UNKNOWN INDICATION
     Dosage: 0.12 MG DAILY
     Route: 042
     Dates: start: 20160503, end: 20160504
  3. CERCINE [Concomitant]
     Active Substance: DIAZEPAM
     Indication: SIMPLE PARTIAL SEIZURES
     Dosage: 10 MG, ONCE DAILY (QD)
     Dates: start: 20160502, end: 20160502
  4. LEVETIRACETAM. [Suspect]
     Active Substance: LEVETIRACETAM
     Indication: SIMPLE PARTIAL SEIZURES
     Dosage: 500 MG, ONCE DAILY (QD), I.V. INFUSION
     Route: 041
     Dates: start: 20160501, end: 20160503

REACTIONS (4)
  - Blood albumin decreased [Not Recovered/Not Resolved]
  - Protein total decreased [Not Recovered/Not Resolved]
  - Haemoglobin decreased [Not Recovered/Not Resolved]
  - Pneumonia [Fatal]

NARRATIVE: CASE EVENT DATE: 20160503
